FAERS Safety Report 23064289 (Version 2)
Quarter: 2024Q1

REPORT INFORMATION
  Report Type: Report from Study
  Country: US (occurrence: US)
  Receive Date: 20231013
  Receipt Date: 20240229
  Transmission Date: 20240410
  Serious: Yes (Other)
  Sender: FDA-Public Use
  Company Number: US-ARGENX-2023-ARGX-US003472

PATIENT

DRUGS (1)
  1. VYVGART [Suspect]
     Active Substance: EFGARTIGIMOD ALFA-FCAB
     Indication: Product used for unknown indication
     Dosage: UNK
     Route: 042

REACTIONS (6)
  - Diabetes mellitus inadequate control [Unknown]
  - Diabetes mellitus [Unknown]
  - Diplopia [Unknown]
  - Essential tremor [Unknown]
  - Diplopia [Unknown]
  - Eyelid operation [Unknown]
